FAERS Safety Report 6923925-1 (Version None)
Quarter: 2010Q3

REPORT INFORMATION
  Report Type: 
  Country: None (occurrence: None)
  Receive Date: 20100813
  Receipt Date: 20100805
  Transmission Date: 20110219
  Serious: Yes (Hospitalization)
  Sender: FDA-Public Use
  Company Number: FR-ELI_LILLY_AND_COMPANY-FR201006000884

PATIENT
  Age: 81 Year
  Sex: Female

DRUGS (4)
  1. FORTEO [Suspect]
     Indication: OSTEOPOROSIS
     Dosage: 20 UG, DAILY (1/D)
     Route: 058
     Dates: start: 20090402
  2. DURAGESIC-100 [Concomitant]
     Indication: PAIN
     Dosage: 25 UG, UNK
     Route: 058
  3. OXYCODONE HCL [Concomitant]
     Indication: PAIN
     Dosage: 5 MG, DAILY (1/D)
     Route: 048
  4. CORTANCYL [Concomitant]
     Indication: TEMPORAL ARTERITIS
     Dosage: 9 MG, DAILY (1/D)
     Route: 048

REACTIONS (4)
  - ANAEMIA [None]
  - BACK PAIN [None]
  - GASTROINTESTINAL HAEMORRHAGE [None]
  - PAIN IN EXTREMITY [None]
